FAERS Safety Report 8470214-2 (Version None)
Quarter: 2012Q2

REPORT INFORMATION
  Report Type: 
  Country: None (occurrence: None)
  Receive Date: 20120627
  Receipt Date: 20120625
  Transmission Date: 20120825
  Serious: No
  Sender: FDA-Public Use
  Company Number: US-TEVA-339429USA

PATIENT
  Age: 19 Year

DRUGS (1)
  1. NUVIGIL [Suspect]
     Indication: NARCOLEPSY
     Route: 048

REACTIONS (3)
  - ANXIETY [None]
  - INSOMNIA [None]
  - AGITATION [None]
